FAERS Safety Report 25933866 (Version 4)
Quarter: 2025Q4

REPORT INFORMATION
  Report Type: Report from Study
  Country: GB (occurrence: GB)
  Receive Date: 20251017
  Receipt Date: 20251217
  Transmission Date: 20260117
  Serious: Yes (Other)
  Sender: AMGEN
  Company Number: GB-AMGEN-GBRSL2025139112

PATIENT
  Age: 68 Year
  Sex: Male

DRUGS (12)
  1. USTEKINUMAB [Suspect]
     Active Substance: USTEKINUMAB
     Indication: Crohn^s disease
     Dosage: 90 MILLIGRAM, Q4WK
     Route: 058
     Dates: start: 20250727
  2. PREGABALIN [Concomitant]
     Active Substance: PREGABALIN
  3. AMLODIPINE [Concomitant]
     Active Substance: AMLODIPINE BESYLATE
  4. CLOPIDOGREL [Concomitant]
     Active Substance: CLOPIDOGREL BISULFATE
  5. LACTULOSE [Concomitant]
     Active Substance: LACTULOSE
  6. LANSOPRAZOLE [Concomitant]
     Active Substance: LANSOPRAZOLE
  7. LOSARTAN [Concomitant]
     Active Substance: LOSARTAN
  8. TAMSULOSIN [Concomitant]
     Active Substance: TAMSULOSIN
  9. AMITRIPTYLINE [Concomitant]
     Active Substance: AMITRIPTYLINE
  10. ATORVASTATIN [Concomitant]
     Active Substance: ATORVASTATIN
  11. GAVISCON [Concomitant]
     Active Substance: ALUMINUM HYDROXIDE\MAGNESIUM CARBONATE
  12. VENTOLIN [Concomitant]
     Active Substance: ALBUTEROL SULFATE

REACTIONS (7)
  - Crohn^s disease [Unknown]
  - Sepsis [Unknown]
  - Vasculitis [Unknown]
  - Off label use [Unknown]
  - Nasopharyngitis [Unknown]
  - Rash [Unknown]
  - Localised infection [Unknown]

NARRATIVE: CASE EVENT DATE: 20250727
